FAERS Safety Report 8867129 (Version 1)
Quarter: 2012Q4

REPORT INFORMATION
  Report Type: 
  Country: US (occurrence: US)
  Receive Date: 20121025
  Receipt Date: 20121025
  Transmission Date: 20130627
  Serious: No
  Sender: FDA-Public Use
  Company Number: US-AMGEN-USASP2012014816

PATIENT
  Age: 45 Year
  Sex: Male

DRUGS (4)
  1. ENBREL [Suspect]
     Indication: PRODUCT USED FOR UNKNOWN INDICATION
     Dosage: 50 mg, qwk
     Route: 058
  2. DIOVAN [Concomitant]
     Dosage: 40 mg, UNK
  3. VITAMIN D /00107901/ [Concomitant]
     Dosage: UNK unit, UNK
  4. ASPIRIN [Concomitant]
     Dosage: 81 mg, UNK

REACTIONS (2)
  - Tooth abscess [Unknown]
  - Localised infection [Unknown]
